FAERS Safety Report 6990521-X (Version None)
Quarter: 2010Q3

REPORT INFORMATION
  Report Type: 
  Country: None (occurrence: None)
  Receive Date: 20100916
  Receipt Date: 20090211
  Transmission Date: 20110219
  Serious: Yes (Disabling)
  Sender: FDA-Public Use
  Company Number: 8-89333-001B

PATIENT
  Sex: Female

DRUGS (2)
  1. PREMARIN [Suspect]
     Dosage: 1 TABLET EVERY 1 TOT
     Route: 048
     Dates: start: 19890809, end: 19890809
  2. UNKNOWN [Concomitant]

REACTIONS (2)
  - BLINDNESS [None]
  - RETINAL DISORDER [None]
